FAERS Safety Report 24161090 (Version 1)
Quarter: 2024Q3

REPORT INFORMATION
  Report Type: Other
  Country: CN (occurrence: CN)
  Receive Date: 20240801
  Receipt Date: 20240801
  Transmission Date: 20241017
  Serious: Yes (Other)
  Sender: PARATEK PHARMACEUTICALS
  Company Number: CN-PARATEK PHARMACEUTICALS, INC.-2024PTK00620

PATIENT
  Age: 87 Year
  Sex: Female

DRUGS (1)
  1. NUZYRA [Suspect]
     Active Substance: OMADACYCLINE
     Indication: Pneumonia bacterial
     Dosage: 0.1 G, 1X/DAY
     Route: 041
     Dates: start: 20240619, end: 20240621

REACTIONS (2)
  - Blood fibrinogen decreased [Recovering/Resolving]
  - Incorrect dose administered [Recovered/Resolved]

NARRATIVE: CASE EVENT DATE: 20240619
